FAERS Safety Report 4069937 (Version 4)
Quarter: 2013Q1

REPORT INFORMATION
  Report Type: Spontaneous
  Country: BR (occurrence: BR)
  Receive Date: 20040123
  Receipt Date: 20130211
  Transmission Date: 20140127
  Serious: Yes (Other)
  Sender: FDA-Public Use
  Company Number: PHBS2004BR00991

PATIENT
  Sex: Male
  Weight: 87 kg

DRUGS (9)
  1. TEGRETOL [Suspect]
     Indication: EPILEPSY
     Dosage: 600 MG, TID
     Route: 048
     Dates: end: 200312
  2. TEGRETOL [Suspect]
     Dosage: 800 MG, BID
     Route: 048
     Dates: start: 200312, end: 2004
  3. TEGRETOL [Suspect]
     Dosage: 1200 MG DAILY (1 TABLET EVERY 8 HOURS)
  4. TEGRETOL [Suspect]
     Dosage: 2 DF EVERY 12 HOURS
     Route: 048
     Dates: start: 2004, end: 2006
  5. TEGRETOL [Suspect]
     Dosage: 2 DF (200 MG), EVERY 24 HOURS
     Route: 048
  6. AMPLICTIL [Concomitant]
     Route: 065
  7. PROMETHAZINE [Concomitant]
     Indication: ANAPHYLACTIC REACTION
     Dosage: 1 TABLET EVERY 12 HOURS,
     Route: 048
  8. LEVOMEPROMAZINE [Concomitant]
     Indication: PSYCHOTIC DISORDER
     Dosage: 1 TABLET EVERY 12 HOURS
     Route: 048
     Dates: start: 2005
  9. HALOPERIDOL [Concomitant]
     Indication: PSYCHOTIC DISORDER
     Dosage: 1 TABLET EVERY 12 HOURS
     Route: 048
     Dates: start: 2004

REACTIONS (12)
  - White blood cell disorder [Recovered/Resolved]
  - Neutrophil count increased [Recovered/Resolved]
  - White blood cell count increased [Recovered/Resolved]
  - Hallucination, auditory [Recovered/Resolved]
  - Acute psychosis [Recovered/Resolved]
  - Hallucination, visual [Recovered/Resolved]
  - Asthenia [Not Recovered/Not Resolved]
  - Appetite disorder [Recovered/Resolved]
  - Somnolence [Recovered/Resolved]
  - Thirst [Recovered/Resolved]
  - Constipation [Recovered/Resolved]
  - Fatigue [Not Recovered/Not Resolved]
